FAERS Safety Report 4492876-7 (Version None)
Quarter: 2004Q4

REPORT INFORMATION
  Report Type: 
  Country: None (occurrence: None)
  Receive Date: 20041104
  Receipt Date: 20040929
  Transmission Date: 20050328
  Serious: Yes (Hospitalization)
  Sender: FDA-Public Use
  Company Number: PHBS2004JP13022

PATIENT
  Age: 54 Year
  Sex: Male

DRUGS (3)
  1. VOLTAREN [Suspect]
     Indication: UPPER RESPIRATORY TRACT INFLAMMATION
     Dosage: 25 MG, PRN
     Route: 048
     Dates: start: 20040921, end: 20040921
  2. KOLANTYL GEL [Concomitant]
     Indication: UPPER RESPIRATORY TRACT INFLAMMATION
     Route: 048
     Dates: start: 20040921, end: 20040921
  3. KETEK [Concomitant]
     Indication: UPPER RESPIRATORY TRACT INFLAMMATION
     Dosage: 600 MG/DAY
     Route: 048
     Dates: start: 20040921, end: 20040921

REACTIONS (8)
  - DYSPNOEA [None]
  - EOSINOPHIL COUNT INCREASED [None]
  - EOSINOPHILIC PNEUMONIA [None]
  - HYPOXIA [None]
  - NASOPHARYNGITIS [None]
  - OXYGEN SATURATION DECREASED [None]
  - PYREXIA [None]
  - WHITE BLOOD CELL COUNT INCREASED [None]
